FAERS Safety Report 5561434-5 (Version None)
Quarter: 2007Q4

REPORT INFORMATION
  Report Type: 
  Country: None (occurrence: None)
  Receive Date: 20071215
  Receipt Date: 20071022
  Transmission Date: 20080405
  Serious: No
  Sender: FDA-Public Use
  Company Number: US-AMGEN-KDL248185

PATIENT
  Sex: Male

DRUGS (4)
  1. ENBREL [Suspect]
     Indication: RHEUMATOID ARTHRITIS
     Route: 058
     Dates: start: 20070922
  2. PLAQUENIL [Concomitant]
  3. PREDNISONE [Concomitant]
  4. CELEBREX [Concomitant]

REACTIONS (6)
  - ARTHRALGIA [None]
  - JOINT EFFUSION [None]
  - JOINT STIFFNESS [None]
  - MUSCULOSKELETAL STIFFNESS [None]
  - OSTEOARTHRITIS [None]
  - SYNOVITIS [None]
